FAERS Safety Report 9632593 (Version 1)
Quarter: 2013Q4

REPORT INFORMATION
  Report Type: Spontaneous
  Country: US (occurrence: US)
  Receive Date: 20131018
  Receipt Date: 20131018
  Transmission Date: 20140711
  Serious: Yes (Hospitalization)
  Sender: FDA-Public Use
  Company Number: US-BAYER-2013-124989

PATIENT
  Age: 17 Year
  Sex: Female

DRUGS (4)
  1. YAZ [Suspect]
  2. GIANVI [Suspect]
  3. NAPROXEN [Concomitant]
  4. OXYCODONE [Concomitant]

REACTIONS (1)
  - Pulmonary embolism [None]
